FAERS Safety Report 10655600 (Version 1)
Quarter: 2014Q4

REPORT INFORMATION
  Report Type: Spontaneous
  Country: US (occurrence: None)
  Receive Date: 20141215
  Receipt Date: 20141215
  Transmission Date: 20150529
  Serious: Yes (Disabling, Other)
  Sender: FDA-Public Use
  Company Number: None

PATIENT
  Age: 38 Year
  Sex: Male
  Weight: 79.38 kg

DRUGS (1)
  1. DULOXETIN HYDROCHLORIDE [Suspect]
     Active Substance: DULOXETINE HYDROCHLORIDE
     Indication: DEPRESSION
     Route: 048
     Dates: start: 20141108, end: 20141213

REACTIONS (3)
  - Restlessness [None]
  - Chills [None]
  - Tremor [None]

NARRATIVE: CASE EVENT DATE: 20141209
